FAERS Safety Report 8522690-4 (Version None)
Quarter: 2012Q3

REPORT INFORMATION
  Report Type: 
  Country: None (occurrence: None)
  Receive Date: 20120719
  Receipt Date: 20120712
  Transmission Date: 20120928
  Serious: Yes (Hospitalization)
  Sender: FDA-Public Use
  Company Number: US-GLAXOSMITHKLINE-A0984015A

PATIENT
  Age: 68 Year
  Sex: Male
  Weight: 107.7 kg

DRUGS (8)
  1. HYDROCODONE BITARTRATE + ACETAMINOPHEN [Concomitant]
  2. OXYCODONE HCL [Concomitant]
  3. PAZOPANIB [Suspect]
     Indication: RENAL CELL CARCINOMA
     Dosage: 800MG PER DAY
     Route: 048
     Dates: start: 20120614
  4. FLOMAX [Concomitant]
  5. TEMAZEPAM [Concomitant]
  6. METOPROLOL TARTRATE [Concomitant]
  7. COUMADIN [Concomitant]
  8. ASPIRIN [Concomitant]

REACTIONS (1)
  - ATRIAL FIBRILLATION [None]
